FAERS Safety Report 5911183-6 (Version None)
Quarter: 2008Q4

REPORT INFORMATION
  Report Type: 
  Country: None (occurrence: None)
  Receive Date: 20081007
  Receipt Date: 20080527
  Transmission Date: 20090506
  Serious: No
  Sender: FDA-Public Use
  Company Number: US-BRISTOL-MYERS SQUIBB COMPANY-14209019

PATIENT
  Age: 67 Year
  Sex: Female

DRUGS (2)
  1. AVAPRO [Suspect]
  2. LISINOPRIL [Suspect]

REACTIONS (2)
  - ADVERSE EVENT [None]
  - MENTAL IMPAIRMENT [None]
